FAERS Safety Report 9799316 (Version 3)
Quarter: 2014Q1

REPORT INFORMATION
  Report Type: Spontaneous
  Country: US (occurrence: US)
  Receive Date: 20140106
  Receipt Date: 20140117
  Transmission Date: 20141002
  Serious: Yes (Death, Life-Threatening, Hospitalization, Other)
  Sender: FDA-Public Use
  Company Number: US-MERCK-1401USA000676

PATIENT
  Sex: Male
  Weight: 98.87 kg

DRUGS (1)
  1. JANUVIA [Suspect]
     Indication: TYPE 2 DIABETES MELLITUS
     Dosage: 100 MG, QD
     Route: 048
     Dates: start: 20100514, end: 20110108

REACTIONS (14)
  - Pancreatic carcinoma [Fatal]
  - Metastases to stomach [Fatal]
  - Colon cancer metastatic [Fatal]
  - Metastases to spleen [Fatal]
  - Pancreatic carcinoma metastatic [Fatal]
  - Respiratory failure [Fatal]
  - Pancreatitis [Unknown]
  - Pancreatic cyst [Unknown]
  - Central venous catheterisation [Unknown]
  - Hepatitis C [Unknown]
  - Peptic ulcer [Unknown]
  - Hypertension [Unknown]
  - Osteoarthritis [Unknown]
  - Osteoarthritis [Unknown]
